FAERS Safety Report 11247298 (Version 2)
Quarter: 2015Q3

REPORT INFORMATION
  Report Type: Spontaneous
  Country: GB (occurrence: GB)
  Receive Date: 20150708
  Receipt Date: 20150724
  Transmission Date: 20151125
  Serious: Yes (Hospitalization, Other)
  Sender: FDA-Public Use
  Company Number: GB-TEVA-575583ACC

PATIENT
  Age: 59 Year
  Sex: Male
  Weight: 145 kg

DRUGS (3)
  1. WARFARIN [Suspect]
     Active Substance: WARFARIN
     Dosage: UNK
  2. XARELTO [Interacting]
     Active Substance: RIVAROXABAN
     Indication: CEREBROVASCULAR ACCIDENT PROPHYLAXIS
     Dosage: 20 MILLIGRAM DAILY;
     Dates: start: 20141008, end: 20141019
  3. XARELTO [Interacting]
     Active Substance: RIVAROXABAN
     Indication: ATRIAL FIBRILLATION

REACTIONS (6)
  - Drug interaction [Unknown]
  - Gastrointestinal haemorrhage [Recovered/Resolved with Sequelae]
  - Gastroduodenal ulcer [Recovered/Resolved with Sequelae]
  - Melaena [Recovered/Resolved with Sequelae]
  - Oesophageal ulcer [Recovered/Resolved with Sequelae]
  - Haematemesis [Recovered/Resolved with Sequelae]

NARRATIVE: CASE EVENT DATE: 20141019
